FAERS Safety Report 20719788 (Version 22)
Quarter: 2024Q4

REPORT INFORMATION
  Report Type: Spontaneous
  Country: GB (occurrence: GB)
  Receive Date: 20220418
  Receipt Date: 20241007
  Transmission Date: 20250114
  Serious: Yes (Death, Hospitalization, Other)
  Sender: MYLAN
  Company Number: GB-MYLANLABS-2020M1003870

PATIENT
  Age: 64 Year
  Sex: Male
  Weight: 80 kg

DRUGS (6)
  1. CLOZARIL [Suspect]
     Active Substance: CLOZAPINE
     Indication: Schizophrenia
     Dosage: 200 MILLIGRAM
     Route: 048
     Dates: start: 20150923, end: 202111
  2. CLOZARIL [Suspect]
     Active Substance: CLOZAPINE
     Dosage: TITRATED FROM 12.5MG START DATE: 03-JAN-2022
     Route: 048
     Dates: start: 20220103
  3. CLOZARIL [Suspect]
     Active Substance: CLOZAPINE
     Dosage: UNK
     Route: 048
     Dates: start: 20220225
  4. CLOZARIL [Suspect]
     Active Substance: CLOZAPINE
     Dosage: UNK
     Route: 048
  5. ZUCLOPENTHIXOL [Suspect]
     Active Substance: ZUCLOPENTHIXOL
     Indication: Schizophrenia
     Dosage: QW, 100 TO 500 MG
     Route: 030
     Dates: start: 202111, end: 202202
  6. LITHIUM [Concomitant]
     Active Substance: LITHIUM
     Dosage: QD, 400 TO 800 MG
     Route: 048
     Dates: start: 202201

REACTIONS (10)
  - Death [Fatal]
  - Haemorrhage intracranial [Unknown]
  - Thrombocytopenia [Recovering/Resolving]
  - Neutropenia [Recovered/Resolved]
  - Leukopenia [Recovered/Resolved]
  - Malaise [Unknown]
  - Haemoglobin decreased [Not Recovered/Not Resolved]
  - Eosinophil count decreased [Not Recovered/Not Resolved]
  - Therapy interrupted [Unknown]
  - Off label use [Unknown]

NARRATIVE: CASE EVENT DATE: 20200108
